FAERS Safety Report 11544793 (Version 4)
Quarter: 2016Q3

REPORT INFORMATION
  Report Type: Spontaneous
  Country: JP (occurrence: JP)
  Receive Date: 20150924
  Receipt Date: 20160718
  Transmission Date: 20161109
  Serious: Yes (Death, Hospitalization)
  Sender: FDA-Public Use
  Company Number: JP-BAYER-2015-423020

PATIENT
  Age: 75 Year
  Sex: Male
  Weight: 63.6 kg

DRUGS (3)
  1. OMEPRAZOLE. [Concomitant]
     Active Substance: OMEPRAZOLE
     Dosage: DAILY DOSE 20 MG
     Route: 048
  2. STIVARGA [Suspect]
     Active Substance: REGORAFENIB
     Indication: COLON CANCER
     Dosage: 160 MG, QD
     Route: 048
     Dates: start: 20150911, end: 20150911
  3. NAUZELIN [Concomitant]
     Active Substance: DOMPERIDONE
     Dosage: DAILY DOSE 30 MG
     Route: 048

REACTIONS (4)
  - Hepatic encephalopathy [Not Recovered/Not Resolved]
  - Melaena [Fatal]
  - Hepatitis fulminant [Fatal]
  - Malaise [Not Recovered/Not Resolved]

NARRATIVE: CASE EVENT DATE: 20150912
